FAERS Safety Report 13211064 (Version 1)
Quarter: 2017Q1

REPORT INFORMATION
  Report Type: Spontaneous
  Country: US (occurrence: US)
  Receive Date: 20170209
  Receipt Date: 20170209
  Transmission Date: 20170428
  Serious: No
  Sender: FDA-Public Use
  Company Number: US-ALLERGAN-1660743US

PATIENT
  Age: 57 Year
  Sex: Female

DRUGS (2)
  1. ADVIL COLD AND SINUS [Concomitant]
     Active Substance: IBUPROFEN\PSEUDOEPHEDRINE HYDROCHLORIDE
     Indication: HYPERSENSITIVITY
     Route: 048
  2. BOTOX [Suspect]
     Active Substance: ONABOTULINUMTOXINA
     Indication: MIGRAINE
     Dosage: UNK
     Route: 030
     Dates: start: 20160613, end: 20160613

REACTIONS (8)
  - Skin mass [Recovered/Resolved]
  - Eyelid ptosis [Recovering/Resolving]
  - Drug ineffective [Unknown]
  - Skin discomfort [Recovered/Resolved]
  - Malaise [Unknown]
  - Neck pain [Recovered/Resolved]
  - Pain [Recovered/Resolved]
  - Haemorrhage [Recovered/Resolved]

NARRATIVE: CASE EVENT DATE: 20160616
